FAERS Safety Report 9929890 (Version 1)
Quarter: 2014Q1

REPORT INFORMATION
  Report Type: Spontaneous
  Country: ZA (occurrence: ZA)
  Receive Date: 20140227
  Receipt Date: 20140227
  Transmission Date: 20141002
  Serious: Yes (Death, Hospitalization)
  Sender: FDA-Public Use
  Company Number: ZA-ABBVIE-14P-143-1206403-00

PATIENT
  Age: 68 Year
  Sex: Female
  Weight: 40 kg

DRUGS (4)
  1. HUMIRA [Suspect]
     Indication: RHEUMATOID ARTHRITIS
     Route: 058
     Dates: start: 20130527
  2. PHARMAPRESS [Concomitant]
     Indication: HYPERTENSION
     Route: 048
  3. ASPERVO [Concomitant]
     Indication: BLOOD CHOLESTEROL
     Route: 048
  4. COXFLAM [Concomitant]
     Indication: ARTHRITIS
     Route: 048

REACTIONS (3)
  - Perforated ulcer [Fatal]
  - Hip surgery [Unknown]
  - Lung infection [Unknown]
